FAERS Safety Report 6522727-8 (Version None)
Quarter: 2009Q4

REPORT INFORMATION
  Report Type: 
  Country: None (occurrence: None)
  Receive Date: 20091222
  Receipt Date: 20091209
  Transmission Date: 20100525
  Serious: Yes (Hospitalization)
  Sender: FDA-Public Use
  Company Number: 2009SP040880

PATIENT
  Age: 70 Year
  Sex: Male

DRUGS (11)
  1. MIRTAZAPINE [Suspect]
     Indication: DEPRESSION
     Dosage: 15 MG;QD;PO; 30 MG;QD;PO
     Route: 048
     Dates: start: 20091101, end: 20091103
  2. MIRTAZAPINE [Suspect]
     Indication: INTENTIONAL SELF-INJURY
     Dosage: 15 MG;QD;PO; 30 MG;QD;PO
     Route: 048
     Dates: start: 20091101, end: 20091103
  3. MIRTAZAPINE [Suspect]
     Indication: DEPRESSION
     Dosage: 15 MG;QD;PO; 30 MG;QD;PO
     Route: 048
     Dates: start: 20091104, end: 20091111
  4. MIRTAZAPINE [Suspect]
     Indication: INTENTIONAL SELF-INJURY
     Dosage: 15 MG;QD;PO; 30 MG;QD;PO
     Route: 048
     Dates: start: 20091104, end: 20091111
  5. TOLEDOMIN (MILNACIPRAN HYDROCHLORIDE) [Suspect]
     Indication: DRUG USE FOR UNKNOWN INDICATION
     Dosage: 75 MG;QD;PO; 100 MG; QD; PO
     Route: 048
     Dates: start: 20091101, end: 20091103
  6. TOLEDOMIN (MILNACIPRAN HYDROCHLORIDE) [Suspect]
     Indication: DRUG USE FOR UNKNOWN INDICATION
     Dosage: 75 MG;QD;PO; 100 MG; QD; PO
     Route: 048
     Dates: start: 20091104, end: 20091111
  7. FLOMOX (CEFCAPENE PIVOXIL HYDROCHLORIDE) [Suspect]
     Indication: DRUG USE FOR UNKNOWN INDICATION
     Dosage: 300 MG;QD;PO
     Route: 048
     Dates: start: 20091104, end: 20091110
  8. LEVOFLOXACIN [Suspect]
     Indication: DRUG USE FOR UNKNOWN INDICATION
     Dosage: 100 MG;QD; PO
     Route: 048
     Dates: start: 20091121, end: 20091124
  9. MINOCYCLINE HCL [Suspect]
     Indication: DRUG USE FOR UNKNOWN INDICATION
     Dosage: 200 MG; QD; PO
     Route: 048
     Dates: start: 20091124, end: 20091124
  10. ALPRAZOLAM (CON.) [Concomitant]
  11. MAPROTILINE HYDROCHLORIDE (CON.) [Concomitant]

REACTIONS (2)
  - HEPATIC FUNCTION ABNORMAL [None]
  - RASH [None]
